FAERS Safety Report 19969114 (Version 1)
Quarter: 2021Q4

REPORT INFORMATION
  Report Type: Spontaneous
  Country: US (occurrence: US)
  Receive Date: 20211019
  Receipt Date: 20211019
  Transmission Date: 20220303
  Serious: No
  Sender: FDA-Public Use
  Company Number: US-GLENMARK PHARMACEUTICALS-2020GMK050030

PATIENT

DRUGS (2)
  1. LIDOCAINE [Suspect]
     Active Substance: LIDOCAINE
     Indication: Neuralgia
     Dosage: UNK, TID (3 TIMES A DAY)
     Route: 061
     Dates: start: 20200902, end: 2020
  2. LIDOCAINE [Suspect]
     Active Substance: LIDOCAINE
     Dosage: UNK, TID (3 TIMES A DAY); REUSED
     Route: 061
     Dates: start: 2020

REACTIONS (3)
  - Product use in unapproved indication [Unknown]
  - Product physical consistency issue [Unknown]
  - No adverse event [Unknown]

NARRATIVE: CASE EVENT DATE: 20200902
